FAERS Safety Report 25302269 (Version 1)
Quarter: 2025Q2

REPORT INFORMATION
  Report Type: Spontaneous
  Country: US (occurrence: US)
  Receive Date: 20250512
  Receipt Date: 20250512
  Transmission Date: 20250717
  Serious: Yes (Hospitalization)
  Sender: Kenvue
  Company Number: US-KENVUE-20250501635

PATIENT
  Age: 65 Year
  Sex: Female

DRUGS (2)
  1. BENADRYL ALLERGY ULTRATAB [Suspect]
     Active Substance: DIPHENHYDRAMINE HYDROCHLORIDE
     Indication: Hypersensitivity
     Route: 065
     Dates: start: 20250428, end: 2025
  2. BENADRYL ALLERGY ULTRATAB [Suspect]
     Active Substance: DIPHENHYDRAMINE HYDROCHLORIDE
     Indication: Somnolence

REACTIONS (7)
  - Off label use [Unknown]
  - Throat tightness [Recovering/Resolving]
  - Burning sensation [Recovering/Resolving]
  - Pain [Recovering/Resolving]
  - Tongue disorder [Recovering/Resolving]
  - Fear [Recovering/Resolving]
  - Dyspnoea [Recovering/Resolving]

NARRATIVE: CASE EVENT DATE: 20250428
